FAERS Safety Report 5950531-8 (Version None)
Quarter: 2008Q4

REPORT INFORMATION
  Report Type: 
  Country: None (occurrence: None)
  Receive Date: 20081112
  Receipt Date: 20081104
  Transmission Date: 20090506
  Serious: Yes (Life-Threatening)
  Sender: FDA-Public Use
  Company Number: IT-GILEAD-2008-0018910

PATIENT
  Sex: Male

DRUGS (8)
  1. VIREAD [Suspect]
     Indication: HIV INFECTION
     Route: 048
     Dates: start: 20081010
  2. ZIAGEN [Suspect]
     Indication: HIV INFECTION
     Route: 048
     Dates: start: 20081010
  3. KALETRA [Suspect]
     Indication: HIV INFECTION
     Route: 030
     Dates: start: 20081010
  4. TRAMADOL HCL [Concomitant]
  5. CLIVARINA [Concomitant]
  6. NEXIUM [Concomitant]
  7. LORAZEPAM [Concomitant]
  8. DELTACORTENE [Concomitant]

REACTIONS (1)
  - MYOCARDIAL INFARCTION [None]
